FAERS Safety Report 4624323-6 (Version None)
Quarter: 2005Q1

REPORT INFORMATION
  Report Type: 
  Country: None (occurrence: None)
  Receive Date: 20050330
  Receipt Date: 20050330
  Transmission Date: 20050727
  Serious: Yes (Other)
  Sender: FDA-Public Use
  Company Number: None

PATIENT
  Age: 40 Year
  Sex: Female
  Weight: 68.9467 kg

DRUGS (9)
  1. ULTRAVIST 300 [Suspect]
     Indication: COMPUTERISED TOMOGRAM
     Dosage: 150 CC IV
     Route: 042
  2. PLAQUENIL [Concomitant]
  3. PREDNISONE [Concomitant]
  4. ADVAIR DISKUS 100/50 [Concomitant]
  5. PROVENTIL [Concomitant]
  6. EFFEXOR XR [Concomitant]
  7. DETROL [Concomitant]
  8. ELAVIL [Concomitant]
  9. MOTRIN [Concomitant]

REACTIONS (4)
  - BLOOD PRESSURE SYSTOLIC INCREASED [None]
  - DYSPHONIA [None]
  - DYSPNOEA [None]
  - URTICARIA [None]
